FAERS Safety Report 4280566-5 (Version None)
Quarter: 2004Q1

REPORT INFORMATION
  Report Type: 
  Country: None (occurrence: None)
  Receive Date: 20040127
  Receipt Date: 20040109
  Transmission Date: 20041129
  Serious: Yes (Life-Threatening, Hospitalization)
  Sender: FDA-Public Use
  Company Number: RENA-10838

PATIENT
  Age: 63 Year
  Sex: Female
  Weight: 57 kg

DRUGS (14)
  1. RENAGEL [Suspect]
     Indication: HYPERPHOSPHATAEMIA
     Dosage: 1.5 G QD PO
     Route: 048
     Dates: start: 20030710, end: 20030711
  2. SODIUM GUALENATE [Concomitant]
  3. METOPROLOL TARTRATE [Concomitant]
  4. THEOPHYLLINE [Concomitant]
  5. DOXAZOSIN MESYLATE [Concomitant]
  6. NIFEDIPINE [Concomitant]
  7. CAPTROPRIL [Concomitant]
  8. ENALAPRIL MALEATE [Concomitant]
  9. CALCIUM POLYSTYRENE SULFONATE [Concomitant]
  10. AMLODIPINE BESYLATE [Concomitant]
  11. CALCIUM CARBONATE [Concomitant]
  12. ACETYLSALICYLIC ACID SRT [Concomitant]
  13. NITRAZEPAM [Concomitant]
  14. DICLOFENAC POTASSIUM [Concomitant]

REACTIONS (7)
  - ATHEROSCLEROSIS [None]
  - CEREBRAL HAEMORRHAGE [None]
  - DIVERTICULITIS [None]
  - ENTEROCOLITIS [None]
  - HAEMODIALYSIS [None]
  - HYPERTENSION [None]
  - PERITONITIS [None]
